FAERS Safety Report 24907645 (Version 1)
Quarter: 2025Q1

REPORT INFORMATION
  Report Type: Spontaneous
  Country: US (occurrence: US)
  Receive Date: 20250131
  Receipt Date: 20250131
  Transmission Date: 20250408
  Serious: No
  Sender: ROCHE
  Company Number: US-ROCHE-10000191539

PATIENT
  Age: 84 Year
  Sex: Female
  Weight: 54.43 kg

DRUGS (2)
  1. VABYSMO [Suspect]
     Active Substance: FARICIMAB-SVOA
     Indication: Macular degeneration
     Route: 050
     Dates: start: 20250116
  2. ZADITOR [Concomitant]
     Active Substance: KETOTIFEN FUMARATE
     Indication: Eye pruritus

REACTIONS (2)
  - Eye haemorrhage [Recovering/Resolving]
  - Contusion [Unknown]

NARRATIVE: CASE EVENT DATE: 20250116
